FAERS Safety Report 23701155 (Version 1)
Quarter: 2024Q2

REPORT INFORMATION
  Report Type: Spontaneous
  Country: US (occurrence: US)
  Receive Date: 20240403
  Receipt Date: 20240403
  Transmission Date: 20240716
  Serious: Yes (Other)
  Sender: FDA-Public Use
  Company Number: US-AJANTA-2024AJA00051

PATIENT
  Age: 46 Year
  Sex: Female
  Weight: 175 kg

DRUGS (2)
  1. DULOXETINE [Suspect]
     Active Substance: DULOXETINE
     Indication: Neuralgia
     Dates: start: 202211
  2. PROGESTERONE [Concomitant]
     Active Substance: PROGESTERONE

REACTIONS (18)
  - Urinary retention [Unknown]
  - Blepharospasm [Unknown]
  - Emotional disorder [Unknown]
  - Altered visual depth perception [Unknown]
  - Trichorrhexis [Unknown]
  - Memory impairment [Unknown]
  - Alopecia [Unknown]
  - Hair texture abnormal [Unknown]
  - Coordination abnormal [Unknown]
  - Drug ineffective [Unknown]
  - Tinnitus [Unknown]
  - Hyperhidrosis [Unknown]
  - Disturbance in attention [Unknown]
  - Fatigue [Unknown]
  - Lethargy [Unknown]
  - Vision blurred [Unknown]
  - Dry eye [Unknown]
  - Wrong technique in product usage process [Unknown]

NARRATIVE: CASE EVENT DATE: 20220101
